FAERS Safety Report 8613926-X (Version None)
Quarter: 2012Q3

REPORT INFORMATION
  Report Type: 
  Country: None (occurrence: None)
  Receive Date: 20120823
  Receipt Date: 20120810
  Transmission Date: 20120928
  Serious: Yes (Hospitalization, Disabling, Other)
  Sender: FDA-Public Use
  Company Number: US-009507513-1203USA03298

PATIENT

DRUGS (14)
  1. ASCORBIC ACID [Concomitant]
     Dosage: 500 MG, UNK
     Route: 048
  2. OMEGA-3-ACID ETHYL ESTERS [Concomitant]
     Dosage: 1000 MG, UNK
     Route: 048
  3. DETROL [Concomitant]
     Route: 048
  4. PRANDIN (DEFLAZACORT) [Concomitant]
     Indication: DIABETES MELLITUS
     Dosage: UNK
     Dates: start: 20020101
  5. FOSAMAX [Suspect]
     Indication: BONE LOSS
     Dosage: 70 MG, UNK
     Route: 048
     Dates: start: 20030601, end: 20070701
  6. METFORMIN [Concomitant]
     Indication: DIABETES MELLITUS
     Dosage: UNK
     Dates: start: 19970101
  7. CIMETIDINE [Concomitant]
     Route: 048
  8. LISINOPRIL [Concomitant]
     Indication: HYPERTENSION
     Dosage: UNK
     Dates: start: 20020101
  9. LOVASTATIN [Concomitant]
     Indication: BLOOD CHOLESTEROL
     Dosage: UNK
     Dates: start: 20020101
  10. AMITRIPTYLINE HCL [Concomitant]
     Indication: STRESS
     Dosage: UNK
     Dates: start: 19820101
  11. CALCIUM (UNSPECIFIED) (+) PHYTONADIONE (+) VITAMIN D (UNSPECIFIED) [Concomitant]
     Dosage: 500 MG, UNK
     Route: 048
  12. ACTOS [Concomitant]
     Indication: DIABETES MELLITUS
     Dosage: UNK
     Dates: start: 20020101, end: 20120301
  13. FOSAMAX PLUS D [Suspect]
     Indication: BONE LOSS
     Dosage: 70 MG, UNK
     Route: 048
     Dates: end: 20100317
  14. MULTI-VITAMINS [Concomitant]
     Route: 048

REACTIONS (10)
  - FEMUR FRACTURE [None]
  - OSTEOPOROSIS [None]
  - SKIN INFECTION [None]
  - DIVERTICULUM [None]
  - HAEMORRHOIDS [None]
  - INFECTION [None]
  - SCOLIOSIS [None]
  - STRESS FRACTURE [None]
  - POLYP [None]
  - LOW TURNOVER OSTEOPATHY [None]
